FAERS Safety Report 13122554 (Version 1)
Quarter: 2017Q1

REPORT INFORMATION
  Report Type: Spontaneous
  Country: SE (occurrence: SE)
  Receive Date: 20170117
  Receipt Date: 20170117
  Transmission Date: 20170428
  Serious: Yes (Hospitalization)
  Sender: FDA-Public Use
  Company Number: SE-TEVA-730065ISR

PATIENT
  Age: 72 Year
  Sex: Female

DRUGS (1)
  1. ENALAPRIL [Suspect]
     Active Substance: ENALAPRIL

REACTIONS (3)
  - Blood sodium decreased [Unknown]
  - Lung disorder [Unknown]
  - Pancreatitis [Unknown]
